FAERS Safety Report 10885903 (Version 1)
Quarter: 2015Q1

REPORT INFORMATION
  Report Type: Spontaneous
  Country: JP (occurrence: None)
  Receive Date: 20150302
  Receipt Date: 20150302
  Transmission Date: 20150721
  Serious: Yes (Hospitalization)
  Sender: FDA-Public Use
  Company Number: FK201500971

PATIENT
  Age: 64 Year
  Sex: Male

DRUGS (5)
  1. FLUOROURACIL (FLUOROURACIL) [Suspect]
     Active Substance: FLUOROURACIL
     Indication: RECTAL CANCER
     Route: 040
  2. OXALIPLATIN (OXALIPLATIN) [Suspect]
     Active Substance: OXALIPLATIN
     Indication: RECTAL CANCER
  3. PALONOSETRON (PALONOSETRON) [Concomitant]
  4. APPEPITANT (APPEPITANT) [Concomitant]
  5. LEUCOVORIN CALCIUM (LEUCOVORIN CALCIUM) [Suspect]
     Active Substance: LEUCOVORIN CALCIUM
     Indication: RECTAL CANCER

REACTIONS (7)
  - Renal impairment [None]
  - Lactic acidosis [None]
  - Mental status changes [None]
  - Ammonia increased [None]
  - Dehydration [None]
  - Urinary tract infection [None]
  - Hiccups [None]
